FAERS Safety Report 11078149 (Version 3)
Quarter: 2015Q2

REPORT INFORMATION
  Report Type: Report from Study
  Country: US (occurrence: US)
  Receive Date: 20150430
  Receipt Date: 20150515
  Transmission Date: 20150821
  Serious: Yes (Death, Hospitalization)
  Sender: FDA-Public Use
  Company Number: PHEH2015US007549

PATIENT
  Age: 67 Year
  Sex: Male
  Weight: 65.31 kg

DRUGS (1)
  1. EXJADE [Suspect]
     Active Substance: DEFERASIROX
     Indication: MYELODYSPLASTIC SYNDROME
     Dosage: 1250 MG, DAILY (QD)
     Route: 048
     Dates: start: 20140303

REACTIONS (4)
  - Cardiac arrest [Fatal]
  - Pneumonia [Not Recovered/Not Resolved]
  - Respiratory arrest [Fatal]
  - Blood creatinine increased [Not Recovered/Not Resolved]

NARRATIVE: CASE EVENT DATE: 20150510
